FAERS Safety Report 8568084-7 (Version None)
Quarter: 2012Q3

REPORT INFORMATION
  Report Type: 
  Country: None (occurrence: None)
  Receive Date: 20120803
  Receipt Date: 20120724
  Transmission Date: 20120928
  Serious: No
  Sender: FDA-Public Use
  Company Number: US-ABBOTT-12P-163-0959746-00

PATIENT
  Sex: Female

DRUGS (2)
  1. NIASPAN [Suspect]
     Dosage: 1 AT BEDTIME FOR 1 MONTH
     Route: 048
  2. NIASPAN [Suspect]
     Indication: PRODUCT USED FOR UNKNOWN INDICATION
     Dosage: 1 DURING THE DAY
     Route: 048

REACTIONS (2)
  - FLUSHING [None]
  - PRURITUS [None]
